FAERS Safety Report 13393915 (Version 1)
Quarter: 2017Q1

REPORT INFORMATION
  Report Type: Spontaneous
  Country: BR (occurrence: BR)
  Receive Date: 20170331
  Receipt Date: 20170331
  Transmission Date: 20170429
  Serious: Yes (Other)
  Sender: FDA-Public Use
  Company Number: BR-BAUSCH-BL-2017-008091

PATIENT
  Age: 71 Year
  Sex: Female
  Weight: 64 kg

DRUGS (1)
  1. TIMOPTOL [Suspect]
     Active Substance: TIMOLOL
     Indication: GLAUCOMA
     Dosage: ONE DROP IN EACH EYE
     Route: 047
     Dates: start: 201612, end: 20170208

REACTIONS (21)
  - Coma [Recovered/Resolved]
  - Tachycardia [Recovered/Resolved]
  - Eating disorder [Not Recovered/Not Resolved]
  - Tongue disorder [Recovered/Resolved]
  - Asthenia [Recovered/Resolved]
  - Amnesia [Not Recovered/Not Resolved]
  - Speech disorder [Recovered/Resolved]
  - Eye pain [Not Recovered/Not Resolved]
  - Microangiopathy [Not Recovered/Not Resolved]
  - Headache [Not Recovered/Not Resolved]
  - Weight decreased [Not Recovered/Not Resolved]
  - Drug hypersensitivity [Not Recovered/Not Resolved]
  - Paraesthesia [Not Recovered/Not Resolved]
  - Dizziness [Not Recovered/Not Resolved]
  - Movement disorder [Recovered/Resolved]
  - Balance disorder [Not Recovered/Not Resolved]
  - Phlebitis [Not Recovered/Not Resolved]
  - Abdominal pain upper [Not Recovered/Not Resolved]
  - Diarrhoea [Recovered/Resolved]
  - Rash [Not Recovered/Not Resolved]
  - Insomnia [Not Recovered/Not Resolved]

NARRATIVE: CASE EVENT DATE: 2017
